FAERS Safety Report 17237031 (Version 9)
Quarter: 2020Q3

REPORT INFORMATION
  Report Type: Spontaneous
  Country: US (occurrence: US)
  Receive Date: 20200106
  Receipt Date: 20200806
  Transmission Date: 20201102
  Serious: Yes (Hospitalization, Other)
  Sender: FDA-Public Use
  Company Number: US-PFIZER INC-2019562828

PATIENT
  Age: 72 Year
  Sex: Female

DRUGS (3)
  1. ARAVA [Concomitant]
     Active Substance: LEFLUNOMIDE
     Dosage: UNK
  2. XELJANZ [Suspect]
     Active Substance: TOFACITINIB CITRATE
     Dosage: 5 MG
     Dates: start: 201912
  3. METHOTREXATE. [Concomitant]
     Active Substance: METHOTREXATE
     Dosage: UNK

REACTIONS (7)
  - Dark circles under eyes [Unknown]
  - Skin discolouration [Unknown]
  - Hallucination [Unknown]
  - Fall [Unknown]
  - Pain in extremity [Unknown]
  - Urinary tract infection [Unknown]
  - Dry skin [Unknown]

NARRATIVE: CASE EVENT DATE: 201912
